FAERS Safety Report 7213791-1 (Version None)
Quarter: 2011Q1

REPORT INFORMATION
  Report Type: 
  Country: None (occurrence: None)
  Receive Date: 20110106
  Receipt Date: 20101227
  Transmission Date: 20110831
  Serious: Yes (Hospitalization, Other)
  Sender: FDA-Public Use
  Company Number: US-ELI_LILLY_AND_COMPANY-US201101000239

PATIENT
  Sex: Female

DRUGS (7)
  1. LANTUS [Concomitant]
  2. HUMALOG [Suspect]
     Dosage: UNK, AS NEEDED
     Dates: start: 20070101
  3. HUMALOG [Suspect]
     Indication: DIABETES MELLITUS
     Dosage: 15 U, OTHER
     Dates: start: 20070101
  4. HUMALOG [Suspect]
     Dosage: 15 U, OTHER
     Dates: start: 20070101
  5. HUMALOG [Suspect]
     Dosage: UNK, AS NEEDED
     Dates: start: 20070101
  6. HUMALOG [Suspect]
     Dosage: UNK, AS NEEDED
     Dates: start: 20070101
  7. HUMALOG [Suspect]
     Dosage: 15 U, OTHER
     Dates: start: 20070101

REACTIONS (4)
  - LUNG DISORDER [None]
  - RENAL DISORDER [None]
  - FATIGUE [None]
  - MALAISE [None]
